FAERS Safety Report 17115801 (Version 1)
Quarter: 2019Q4

REPORT INFORMATION
  Report Type: Spontaneous
  Country: US (occurrence: US)
  Receive Date: 20191204
  Receipt Date: 20191204
  Transmission Date: 20200122
  Serious: Yes (Other)
  Sender: FDA-Public Use
  Company Number: None

PATIENT
  Age: 63 Year
  Sex: Male
  Weight: 50.8 kg

DRUGS (5)
  1. LISINOPRIL 20MG TABLETS [Concomitant]
     Active Substance: LISINOPRIL
  2. VITAMIN D 2,000 UNIT CAPSULES [Concomitant]
  3. ATORVASTATIN 40MG TABLETS [Concomitant]
  4. FLUVOXAMINE 50MG TABLETS [Concomitant]
  5. BIKTARVY [Suspect]
     Active Substance: BICTEGRAVIR SODIUM\EMTRICITABINE\TENOFOVIR ALAFENAMIDE FUMARATE
     Indication: HIV TEST POSITIVE
     Route: 048
     Dates: start: 20191024

REACTIONS (5)
  - Dizziness [None]
  - Tinnitus [None]
  - Nausea [None]
  - Visual impairment [None]
  - Headache [None]

NARRATIVE: CASE EVENT DATE: 20191204
